FAERS Safety Report 5702815-6 (Version None)
Quarter: 2008Q2

REPORT INFORMATION
  Report Type: 
  Country: None (occurrence: None)
  Receive Date: 20080411
  Receipt Date: 20080401
  Transmission Date: 20081010
  Serious: Yes (Hospitalization)
  Sender: FDA-Public Use
  Company Number: US-ELI_LILLY_AND_COMPANY-US200802006340

PATIENT
  Sex: Male
  Weight: 136.5 kg

DRUGS (22)
  1. BYETTA [Suspect]
     Dosage: 5 UG, 2/D
     Route: 058
     Dates: start: 20060922, end: 20061020
  2. BYETTA [Suspect]
     Dosage: 10 UG, 2/D
     Route: 058
     Dates: start: 20061022
  3. BYETTA [Suspect]
     Dosage: 10 UG, 2/D
     Route: 058
     Dates: start: 20061022
  4. BYETTA [Suspect]
     Dosage: 10 UG, 2/D
     Route: 058
     Dates: start: 20061022
  5. CELEBREX [Concomitant]
     Indication: ARTHRALGIA
     Dosage: UNK, UNKNOWN
     Dates: end: 20060101
  6. GLYBURIDE [Concomitant]
     Dosage: UNK, DAILY (1/D)
  7. GLUCOPHAGE [Concomitant]
     Dosage: 850 MG, 2/D
  8. POTASSIUM CHLORIDE [Concomitant]
     Indication: SUPPLEMENTATION THERAPY
     Dosage: 20 MEQ, DAILY (1/D)
  9. FUROSEMIDE [Concomitant]
     Dosage: UNK, EACH MORNING
  10. FUROSEMIDE [Concomitant]
     Dosage: 60 MG, EACH EVENING
  11. LIPITOR [Concomitant]
     Indication: CARDIAC DISORDER
     Dosage: 20 MG, DAILY (1/D)
  12. METOPROLOL TARTRATE [Concomitant]
     Indication: CARDIAC DISORDER
     Dosage: UNK, DAILY (1/D)
  13. ACCUPRIL [Concomitant]
     Indication: CARDIAC DISORDER
     Dosage: UNK, DAILY (1/D)
  14. MAGNESIUM [Concomitant]
     Indication: CARDIAC DISORDER
     Dosage: 64 MG, DAILY (1/D)
  15. NEURONTIN [Concomitant]
     Indication: NEUROPATHY PERIPHERAL
     Dosage: 800 MG, 3/D
  16. OMEPRAZOLE [Concomitant]
     Dosage: 20 MG, DAILY (1/D)
  17. ZANTAC [Concomitant]
     Indication: PROPHYLAXIS
     Dosage: 150 MG, EACH EVENING
  18. ULTRAM [Concomitant]
     Indication: PAIN
     Dosage: 50 MG, EACH MORNING
  19. ULTRAM [Concomitant]
     Dosage: 100 MG, EACH EVENING
  20. ASPIRIN [Concomitant]
     Indication: CARDIAC DISORDER
     Dosage: 81 MG, DAILY (1/D)
  21. ALLOPURINOL [Concomitant]
     Indication: PROPHYLAXIS
     Dosage: 300 MG, DAILY (1/D)
  22. VITAMINS [Concomitant]
     Dosage: UNK, DAILY (1/D)

REACTIONS (5)
  - ASTHENIA [None]
  - CELLULITIS [None]
  - COUGH [None]
  - DYSPNOEA [None]
  - FATIGUE [None]
